FAERS Safety Report 12620555 (Version 3)
Quarter: 2016Q4

REPORT INFORMATION
  Report Type: Spontaneous
  Country: US (occurrence: US)
  Receive Date: 20160804
  Receipt Date: 20161230
  Transmission Date: 20170207
  Serious: No
  Sender: FDA-Public Use
  Company Number: US-BIOGEN-2016BI00272783

PATIENT
  Sex: Female

DRUGS (1)
  1. TECFIDERA [Suspect]
     Active Substance: DIMETHYL FUMARATE
     Indication: MULTIPLE SCLEROSIS
     Route: 065
     Dates: start: 20151125

REACTIONS (6)
  - Multiple sclerosis relapse [Recovered/Resolved]
  - Dysarthria [Unknown]
  - Balance disorder [Not Recovered/Not Resolved]
  - Cognitive disorder [Unknown]
  - Weight bearing difficulty [Unknown]
  - Trigeminal neuralgia [Not Recovered/Not Resolved]

NARRATIVE: CASE EVENT DATE: 2016
